FAERS Safety Report 8025133-2 (Version None)
Quarter: 2012Q1

REPORT INFORMATION
  Report Type: 
  Country: None (occurrence: None)
  Receive Date: 20120105
  Receipt Date: 20111222
  Transmission Date: 20120608
  Serious: Yes (Life-Threatening, Hospitalization)
  Sender: FDA-Public Use
  Company Number: JP-ROCHE-1014427

PATIENT
  Sex: Female

DRUGS (5)
  1. CLONAZEPAM [Suspect]
     Indication: SCHIZOPHRENIA
     Route: 048
     Dates: start: 20110926, end: 20111102
  2. CARBAMAZEPINE [Suspect]
     Indication: PRODUCT USED FOR UNKNOWN INDICATION
     Route: 048
  3. ROHYPNOL [Concomitant]
     Indication: INSOMNIA
     Route: 048
     Dates: start: 20070804, end: 20111108
  4. RISPERDAL [Concomitant]
     Indication: SCHIZOPHRENIA
     Route: 048
     Dates: start: 20070804
  5. TEGRETOL [Concomitant]
     Indication: EPILEPSY
     Route: 048
     Dates: start: 20110926, end: 20111108

REACTIONS (8)
  - LIVER DISORDER [None]
  - ABDOMINAL PAIN [None]
  - HAEMATOCHEZIA [None]
  - RASH [None]
  - DYSPNOEA [None]
  - NAUSEA [None]
  - DRUG ERUPTION [None]
  - DIARRHOEA [None]
